FAERS Safety Report 16424120 (Version 3)
Quarter: 2019Q3

REPORT INFORMATION
  Report Type: Report from Study
  Country: CA (occurrence: CA)
  Receive Date: 20190613
  Receipt Date: 20190702
  Transmission Date: 20191004
  Serious: Yes (Other)
  Sender: FDA-Public Use
  Company Number: CA-TEVA-792177ACC

PATIENT
  Sex: Female

DRUGS (7)
  1. COPAXONE [Suspect]
     Active Substance: GLATIRAMER ACETATE
     Indication: MULTIPLE SCLEROSIS
     Dosage: 20 MILLIGRAM/MILLILITERS DAILY;
     Route: 058
     Dates: start: 20150205
  2. MEZAVANT [Concomitant]
     Active Substance: MESALAMINE
  3. IRON [Concomitant]
     Active Substance: IRON
  4. BACLOFEN. [Concomitant]
     Active Substance: BACLOFEN
  5. PMS-METHYLPHENIDATE [Concomitant]
     Active Substance: METHYLPHENIDATE HYDROCHLORIDE
  6. JAMP-VITAMIN D [Concomitant]
  7. PROMETRIUM [Concomitant]
     Active Substance: PROGESTERONE

REACTIONS (1)
  - Colitis ulcerative [Unknown]
